FAERS Safety Report 9218950 (Version 1)
Quarter: 2013Q2

REPORT INFORMATION
  Report Type: Spontaneous
  Country: US (occurrence: None)
  Receive Date: 20130405
  Receipt Date: 20130405
  Transmission Date: 20140414
  Serious: Yes (Other)
  Sender: FDA-Public Use
  Company Number: None

PATIENT
  Age: 19 Year
  Sex: Male
  Weight: 117.2 kg

DRUGS (2)
  1. CONCERTA [Suspect]
     Dosage: II QAM PO
     Route: 048
     Dates: start: 20070125
  2. CONCERTA [Suspect]
     Indication: MYOCLONIC EPILEPSY
     Dosage: II QAM PO
     Route: 048
     Dates: start: 20070125

REACTIONS (1)
  - Therapeutic response unexpected with drug substitution [None]
